FAERS Safety Report 20164453 (Version 1)
Quarter: 2021Q4

REPORT INFORMATION
  Report Type: Spontaneous
  Country: JP (occurrence: None)
  Receive Date: 20211209
  Receipt Date: 20211209
  Transmission Date: 20220304
  Serious: Yes (Other)
  Sender: FDA-Public Use
  Company Number: 2021A855325

PATIENT
  Sex: Female

DRUGS (2)
  1. TAGRISSO [Suspect]
     Active Substance: OSIMERTINIB
     Indication: Non-small cell lung cancer
     Route: 048
     Dates: start: 202106
  2. IRESSA [Suspect]
     Active Substance: GEFITINIB
     Indication: Non-small cell lung cancer
     Route: 048

REACTIONS (11)
  - Metastases to central nervous system [Unknown]
  - Metastases to meninges [Unknown]
  - Subarachnoid haemorrhage [Unknown]
  - Dyspnoea [Unknown]
  - Mobility decreased [Unknown]
  - Hangnail [Unknown]
  - Ingrowing nail [Unknown]
  - Nail discolouration [Unknown]
  - Paronychia [Unknown]
  - Stomatitis [Recovered/Resolved]
  - Onychalgia [Unknown]

NARRATIVE: CASE EVENT DATE: 20180101
